FAERS Safety Report 15665420 (Version 2)
Quarter: 2018Q4

REPORT INFORMATION
  Report Type: Spontaneous
  Country: US (occurrence: US)
  Receive Date: 20181128
  Receipt Date: 20181213
  Transmission Date: 20190205
  Serious: No
  Sender: FDA-Public Use
  Company Number: US-BIOGEN-2018BI00663405

PATIENT
  Age: 45 Year
  Sex: Female
  Weight: 81.72 kg

DRUGS (3)
  1. PLEGRIDY [Suspect]
     Active Substance: PEGINTERFERON BETA-1A
     Route: 058
     Dates: start: 20181107
  2. PLEGRIDY [Suspect]
     Active Substance: PEGINTERFERON BETA-1A
     Indication: MULTIPLE SCLEROSIS
     Route: 058
  3. PLEGRIDY [Suspect]
     Active Substance: PEGINTERFERON BETA-1A
     Route: 058
     Dates: start: 20181205

REACTIONS (3)
  - Myalgia [Recovered/Resolved]
  - Multiple sclerosis relapse [Unknown]
  - Injection site reaction [Unknown]

NARRATIVE: CASE EVENT DATE: 20181121
